FAERS Safety Report 9772028 (Version 1)
Quarter: 2013Q4

REPORT INFORMATION
  Report Type: Report from Study
  Country: IL (occurrence: IL)
  Receive Date: 20131219
  Receipt Date: 20131219
  Transmission Date: 20140711
  Serious: Yes (Other)
  Sender: FDA-Public Use
  Company Number: IL-ROCHE-1319778

PATIENT
  Age: 59 Year
  Sex: Female

DRUGS (2)
  1. HERCEPTIN [Suspect]
     Indication: BREAST CANCER METASTATIC
     Route: 065
  2. NAVELBINE [Concomitant]
     Indication: BREAST CANCER METASTATIC

REACTIONS (1)
  - Disease progression [Unknown]
